FAERS Safety Report 9929171 (Version 4)
Quarter: 2014Q2

REPORT INFORMATION
  Report Type: Report from Study
  Country: US (occurrence: US)
  Receive Date: 20140227
  Receipt Date: 20140502
  Transmission Date: 20141212
  Serious: Yes (Hospitalization)
  Sender: FDA-Public Use
  Company Number: US-ACTELION-A-US2014-95492

PATIENT
  Age: 32 Year
  Sex: Female

DRUGS (2)
  1. VENTAVIS [Suspect]
     Indication: PULMONARY ARTERIAL HYPERTENSION
     Dosage: 5 MCG, 6-9X/DAY
     Route: 055
     Dates: start: 20130912
  2. ADCIRCA [Concomitant]

REACTIONS (3)
  - Thrombosis [Recovered/Resolved]
  - Hypertension [Unknown]
  - Pneumonia [Recovered/Resolved]
